FAERS Safety Report 11138195 (Version 2)
Quarter: 2015Q3

REPORT INFORMATION
  Report Type: Spontaneous
  Country: GB (occurrence: GB)
  Receive Date: 20150526
  Receipt Date: 20150811
  Transmission Date: 20151125
  Serious: Yes (Death, Other)
  Sender: FDA-Public Use
  Company Number: GB-AMGEN-GBRSP2015050522

PATIENT
  Age: 71 Year
  Sex: Female

DRUGS (6)
  1. METHOTREXATE SODIUM. [Suspect]
     Active Substance: METHOTREXATE SODIUM
     Indication: RHEUMATOID ARTHRITIS
     Dosage: 10 MG, WEEKLY
     Route: 048
     Dates: start: 20000223, end: 20150311
  2. SERETIDE [Concomitant]
     Active Substance: FLUTICASONE FUROATE\SALMETEROL XINAFOATE
     Dosage: UNK
  3. FOLIC ACID. [Concomitant]
     Active Substance: FOLIC ACID
     Dosage: UNK
  4. ENBREL [Suspect]
     Active Substance: ETANERCEPT
     Indication: RHEUMATOID ARTHRITIS
     Dosage: 50 MG, WEEKLY
     Route: 058
     Dates: start: 20090926, end: 201503
  5. SPIRIVA [Concomitant]
     Active Substance: TIOTROPIUM BROMIDE MONOHYDRATE
     Dosage: UNK
  6. SALBUTAMOL [Concomitant]
     Active Substance: ALBUTEROL
     Dosage: UNK

REACTIONS (2)
  - Metastases to bone [Not Recovered/Not Resolved]
  - Lung neoplasm malignant [Fatal]

NARRATIVE: CASE EVENT DATE: 201503
